FAERS Safety Report 24004985 (Version 3)
Quarter: 2024Q3

REPORT INFORMATION
  Report Type: Report from Study
  Country: US (occurrence: US)
  Receive Date: 20240624
  Receipt Date: 20240722
  Transmission Date: 20241016
  Serious: Yes (Other)
  Sender: APELLIS PHARMACEUTICALS
  Company Number: US-APELLIS-2024-APL-0000137

PATIENT

DRUGS (10)
  1. PEGCETACOPLAN [Suspect]
     Active Substance: PEGCETACOPLAN
     Indication: Paroxysmal nocturnal haemoglobinuria
     Dosage: 1080MG TWICE WEEKLY
     Route: 058
     Dates: start: 20230417
  2. PEGCETACOPLAN [Suspect]
     Active Substance: PEGCETACOPLAN
     Dosage: 1080 MG TWICE WEEKLY
     Route: 058
     Dates: start: 20230228, end: 20240712
  3. TYLENOL [Concomitant]
     Active Substance: ACETAMINOPHEN
     Indication: Product used for unknown indication
  4. HIBICLENS [Concomitant]
     Active Substance: CHLORHEXIDINE GLUCONATE
     Indication: Product used for unknown indication
  5. DIPHENHYDRAMINE [Concomitant]
     Active Substance: DIPHENHYDRAMINE
     Indication: Product used for unknown indication
  6. EPINEPHRINE [Concomitant]
     Active Substance: EPINEPHRINE
     Indication: Product used for unknown indication
  7. NEXPLANON [Concomitant]
     Active Substance: ETONOGESTREL
     Indication: Product used for unknown indication
  8. FERROUS SULFATE [Concomitant]
     Active Substance: FERROUS SULFATE
     Indication: Product used for unknown indication
  9. MECLIZINE [Concomitant]
     Active Substance: MECLIZINE HYDROCHLORIDE
     Indication: Product used for unknown indication
  10. VALTREX [Concomitant]
     Active Substance: VALACYCLOVIR HYDROCHLORIDE
     Indication: Product used for unknown indication

REACTIONS (13)
  - Paroxysmal nocturnal haemoglobinuria [Unknown]
  - Disease progression [Unknown]
  - Fibrin D dimer increased [Unknown]
  - Gingival bleeding [Unknown]
  - White blood cell count decreased [Unknown]
  - Haemoglobin decreased [Unknown]
  - Haematocrit decreased [Unknown]
  - Platelet count decreased [Unknown]
  - Blood lactate dehydrogenase increased [Recovered/Resolved]
  - Fatigue [Unknown]
  - Headache [Unknown]
  - Sinusitis [Recovering/Resolving]
  - Influenza [Unknown]

NARRATIVE: CASE EVENT DATE: 20240506
